FAERS Safety Report 4814852-4 (Version None)
Quarter: 2005Q4

REPORT INFORMATION
  Report Type: 
  Country: None (occurrence: None)
  Receive Date: 20051027
  Receipt Date: 20051027
  Transmission Date: 20060501
  Serious: Yes (Life-Threatening, Hospitalization)
  Sender: FDA-Public Use
  Company Number: None

PATIENT
  Age: 56 Year
  Sex: Male
  Weight: 129.7 kg

DRUGS (9)
  1. AMIODARONE 200MG (UDL) [Suspect]
  2. COUMADIN [Concomitant]
  3. BENAZEPRIL HCL [Concomitant]
  4. HYDROCODONE 5/ACETAMINOPHEN [Concomitant]
  5. METOPROLOL TARTRATE [Concomitant]
  6. SIMVASTATIN [Concomitant]
  7. ASPIRIN [Concomitant]
  8. OMEGA-3 (N-3) POLYUNSAT FATTY ACID [Concomitant]
  9. NIACIN (NIASPAN-KOS) [Concomitant]

REACTIONS (4)
  - CONVULSION [None]
  - FEELING HOT [None]
  - FLUSHING [None]
  - HYPERHIDROSIS [None]
